FAERS Safety Report 4808196-4 (Version None)
Quarter: 2005Q4

REPORT INFORMATION
  Report Type: 
  Country: None (occurrence: None)
  Receive Date: 20051021
  Receipt Date: 20051013
  Transmission Date: 20060501
  Serious: Yes (Hospitalization)
  Sender: FDA-Public Use
  Company Number: 2005-09-1281

PATIENT
  Age: 49 Year
  Sex: Female
  Weight: 63.5036 kg

DRUGS (1)
  1. PEG-INTRON [Suspect]
     Indication: HEPATITIS C
     Dosage: 96 MCG QWK SUBCUTANEOUS
     Route: 058
     Dates: start: 20050705, end: 20050927

REACTIONS (5)
  - ANURIA [None]
  - DEVICE FAILURE [None]
  - DRUG DOSE OMISSION [None]
  - MICTURITION DISORDER [None]
  - URINARY BLADDER HAEMORRHAGE [None]
